FAERS Safety Report 7259258-6 (Version None)
Quarter: 2011Q1

REPORT INFORMATION
  Report Type: 
  Country: None (occurrence: None)
  Receive Date: 20110129
  Receipt Date: 20100727
  Transmission Date: 20110831
  Serious: No
  Sender: FDA-Public Use
  Company Number: US-ABBOTT-10P-163-0660853-00

PATIENT
  Sex: Female

DRUGS (1)
  1. HUMIRA [Suspect]
     Indication: CROHN'S DISEASE
     Route: 058
     Dates: start: 20100713, end: 20100726

REACTIONS (6)
  - ABNORMAL SENSATION IN EYE [None]
  - PRURITUS [None]
  - DYSPNOEA [None]
  - CONTUSION [None]
  - URTICARIA [None]
  - OEDEMA PERIPHERAL [None]
